FAERS Safety Report 8409748-5 (Version None)
Quarter: 2012Q2

REPORT INFORMATION
  Report Type: 
  Country: None (occurrence: None)
  Receive Date: 20120605
  Receipt Date: 20120528
  Transmission Date: 20120825
  Serious: Yes (Other)
  Sender: FDA-Public Use
  Company Number: US-US-EMD SERONO, INC.-7136602

PATIENT
  Sex: Female
  Weight: 45 kg

DRUGS (2)
  1. REBIF [Suspect]
     Dates: start: 20120429
  2. REBIF [Suspect]
     Indication: MULTIPLE SCLEROSIS
     Route: 058
     Dates: start: 20100901, end: 20111018

REACTIONS (8)
  - HAEMORRHAGE [None]
  - SUICIDAL IDEATION [None]
  - URTICARIA [None]
  - PSORIATIC ARTHROPATHY [None]
  - CRYING [None]
  - INJECTION SITE RASH [None]
  - INJECTION SITE HAEMATOMA [None]
  - MULTIPLE SCLEROSIS [None]
